FAERS Safety Report 11296884 (Version 1)
Quarter: 2015Q3

REPORT INFORMATION
  Report Type: Spontaneous
  Country: US (occurrence: US)
  Receive Date: 20150722
  Receipt Date: 20150722
  Transmission Date: 20151125
  Serious: No
  Sender: FDA-Public Use
  Company Number: US-ELI_LILLY_AND_COMPANY-US201010004901

PATIENT
  Age: 77 Year
  Sex: Male

DRUGS (4)
  1. EFFIENT [Suspect]
     Active Substance: PRASUGREL HYDROCHLORIDE
     Indication: RENAL ARTERY STENT PLACEMENT
     Dosage: 5 MG, QOD
  2. FUROSEMIDE. [Concomitant]
     Active Substance: FUROSEMIDE
     Dosage: 40 MG, DAILY (1/D)
  3. LANTUS [Concomitant]
     Active Substance: INSULIN GLARGINE
     Dosage: 48 IU, OTHER (AT NIGHT)
  4. LISINOPRIL. [Concomitant]
     Active Substance: LISINOPRIL
     Dosage: 40 MG, DAILY (1/D)

REACTIONS (21)
  - Pain in extremity [Unknown]
  - Joint swelling [Unknown]
  - Chest pain [Unknown]
  - Back pain [Unknown]
  - Diarrhoea [Unknown]
  - Lip swelling [Unknown]
  - Urine flow decreased [Unknown]
  - Micturition disorder [Unknown]
  - Heart rate irregular [Unknown]
  - Swelling face [Unknown]
  - Diabetes mellitus inadequate control [Unknown]
  - Contusion [Unknown]
  - Dyspnoea [Unknown]
  - Eye swelling [Unknown]
  - Skin discolouration [Unknown]
  - Pharyngeal oedema [Unknown]
  - Mouth swelling [Unknown]
  - Swollen tongue [Unknown]
  - Asthenia [Unknown]
  - Muscular weakness [Unknown]
  - Peripheral swelling [Unknown]
